FAERS Safety Report 23981222 (Version 1)
Quarter: 2024Q2

REPORT INFORMATION
  Report Type: Spontaneous
  Country: US (occurrence: None)
  Receive Date: 20240614
  Receipt Date: 20240614
  Transmission Date: 20240716
  Serious: Yes (Other)
  Sender: FDA-Public Use
  Company Number: None

PATIENT
  Age: 59 Year
  Sex: Male

DRUGS (1)
  1. READI-CAT 2 [Suspect]
     Active Substance: BARIUM SULFATE
     Indication: Computerised tomogram abdomen
     Dosage: 900 MG ONCE ORAL
     Route: 048
     Dates: start: 20240529, end: 20240529

REACTIONS (4)
  - Contrast media reaction [None]
  - Dyspnoea [None]
  - Urticaria [None]
  - Hypersensitivity [None]

NARRATIVE: CASE EVENT DATE: 20240529
